FAERS Safety Report 25724813 (Version 1)
Quarter: 2025Q3

REPORT INFORMATION
  Report Type: Report from Study
  Country: US (occurrence: US)
  Receive Date: 20250826
  Receipt Date: 20250826
  Transmission Date: 20251021
  Serious: Yes (Other)
  Sender: ALEXION PHARMACEUTICALS
  Company Number: US-AstraZeneca-CH-00936275A

PATIENT
  Sex: Female

DRUGS (1)
  1. OSIMERTINIB [Suspect]
     Active Substance: OSIMERTINIB
     Dosage: 80 MILLIGRAM, QD
     Dates: start: 2024

REACTIONS (16)
  - Brain oedema [Unknown]
  - Neuropathy peripheral [Unknown]
  - Skin disorder [Unknown]
  - Poor quality sleep [Unknown]
  - Diarrhoea [Unknown]
  - Ulcer haemorrhage [Unknown]
  - Urinary tract infection [Unknown]
  - Blood magnesium decreased [Unknown]
  - Coagulation time prolonged [Unknown]
  - Skin exfoliation [Recovering/Resolving]
  - Contusion [Unknown]
  - Nausea [Unknown]
  - Vomiting [Unknown]
  - Weight increased [Unknown]
  - Dyspnoea [Unknown]
  - Productive cough [Unknown]
